FAERS Safety Report 24148618 (Version 1)
Quarter: 2024Q3

REPORT INFORMATION
  Report Type: Spontaneous
  Country: IN (occurrence: IN)
  Receive Date: 20240729
  Receipt Date: 20240729
  Transmission Date: 20241017
  Serious: Yes (Other)
  Sender: SANDOZ
  Company Number: IN-SANDOZ-SDZ2023IN067283

PATIENT
  Sex: Male

DRUGS (4)
  1. Azoran [Concomitant]
     Indication: Product used for unknown indication
     Dosage: UNK
     Route: 065
  2. MYFORTIC [Concomitant]
     Active Substance: MYCOPHENOLATE SODIUM
     Indication: Product used for unknown indication
     Dosage: UNK
     Route: 065
  3. TACROLIMUS [Interacting]
     Active Substance: TACROLIMUS
     Indication: Renal transplant
     Dosage: 2 MG, BID
     Route: 048
     Dates: start: 20230322
  4. TACROLIMUS [Interacting]
     Active Substance: TACROLIMUS
     Dosage: UNK
     Route: 065

REACTIONS (12)
  - Blood alkaline phosphatase increased [Unknown]
  - Hydrocele male infected [Unknown]
  - Varicocele [Unknown]
  - Blood creatinine abnormal [Recovering/Resolving]
  - Dysuria [Unknown]
  - Platelet count decreased [Unknown]
  - Drug level decreased [Unknown]
  - Drug interaction [Unknown]
  - Pain in extremity [Unknown]
  - Cough [Unknown]
  - Asthenia [Unknown]
  - Hypertension [Unknown]
